FAERS Safety Report 5000002-0 (Version None)
Quarter: 2006Q2

REPORT INFORMATION
  Report Type: 
  Country: None (occurrence: None)
  Receive Date: 20060501
  Receipt Date: 20060420
  Transmission Date: 20061013
  Serious: Yes (Death)
  Sender: FDA-Public Use
  Company Number: 2006050880

PATIENT
  Age: 72 Year
  Sex: Male

DRUGS (12)
  1. XANAX [Suspect]
     Indication: ILL-DEFINED DISORDER
     Dosage: ORAL
     Route: 048
  2. HALCION [Suspect]
     Indication: ILL-DEFINED DISORDER
     Dosage: ORAL
     Route: 048
  3. EPOGEN [Concomitant]
  4. SELBEX (TEPRENONE) [Concomitant]
  5. GASMOTIN (MOSAPRIDE CITRATE) [Concomitant]
  6. DEPAS (ETIZOLAM) [Concomitant]
  7. TICLOPIDINE HCL [Concomitant]
  8. ASPIRIN [Concomitant]
  9. ISOSORBIDE DINITRATE [Concomitant]
  10. ATELEC (CILNIDIPINE) [Concomitant]
  11. LASIX [Concomitant]
  12. LIPITOR [Concomitant]

REACTIONS (2)
  - COMPLETED SUICIDE [None]
  - LOSS OF CONSCIOUSNESS [None]
